FAERS Safety Report 5921744-6 (Version None)
Quarter: 2008Q4

REPORT INFORMATION
  Report Type: 
  Country: None (occurrence: None)
  Receive Date: 20081016
  Receipt Date: 20081016
  Transmission Date: 20090506
  Serious: Yes (Death)
  Sender: FDA-Public Use
  Company Number: None

PATIENT
  Age: 63 Year
  Sex: Male
  Weight: 78.9259 kg

DRUGS (2)
  1. REVLIMID [Suspect]
     Indication: MULTIPLE MYELOMA
     Dosage: 25 MG 1X DAILY 21 DAYS PO
     Route: 048
     Dates: start: 20080603, end: 20080614
  2. REVLIMID [Suspect]
     Indication: MULTIPLE MYELOMA
     Dosage: 10 MG 1X 3 OR 4 DAYS PO
     Route: 048
     Dates: start: 20080726, end: 20080904

REACTIONS (13)
  - BURNING SENSATION [None]
  - CRYING [None]
  - DIALYSIS [None]
  - DYSPNOEA [None]
  - FEELING ABNORMAL [None]
  - HEADACHE [None]
  - LABORATORY TEST ABNORMAL [None]
  - LOSS OF CONSCIOUSNESS [None]
  - MULTI-ORGAN DISORDER [None]
  - OROPHARYNGEAL PAIN [None]
  - RASH GENERALISED [None]
  - RASH PRURITIC [None]
  - SUNBURN [None]
